FAERS Safety Report 5852766-1 (Version None)
Quarter: 2008Q3

REPORT INFORMATION
  Report Type: 
  Country: None (occurrence: None)
  Receive Date: 20080821
  Receipt Date: 20080812
  Transmission Date: 20090109
  Serious: Yes (Other)
  Sender: FDA-Public Use
  Company Number: DE-ASTRAZENECA-2008PK01788

PATIENT
  Age: 72 Year
  Sex: Female

DRUGS (5)
  1. ARIMIDEX [Suspect]
     Indication: BREAST CANCER
     Route: 048
  2. VALPROATE SODIUM [Concomitant]
  3. KEPPRA [Concomitant]
  4. LAMICTAL [Concomitant]
  5. PHENOBARBITAL TAB [Concomitant]

REACTIONS (1)
  - EPILEPSY [None]
